FAERS Safety Report 21550006 (Version 1)
Quarter: 2022Q4

REPORT INFORMATION
  Report Type: Other
  Country: CN (occurrence: None)
  Receive Date: 20221103
  Receipt Date: 20221103
  Transmission Date: 20230113
  Serious: Yes (Hospitalization, Other)
  Sender: FDA-Public Use
  Company Number: CN-Nivagen-000024

PATIENT
  Age: 47 Year
  Sex: Female

DRUGS (4)
  1. TEMOZOLOMIDE [Suspect]
     Active Substance: TEMOZOLOMIDE
     Indication: Astrocytoma
     Dosage: 150 MG/M2/DAY, 7/7 DAY PER CYCLE
  2. PEMBROLIZUMAB [Suspect]
     Active Substance: PEMBROLIZUMAB
     Indication: Product used for unknown indication
     Dosage: 200 MG, EVERY 3 WEEKS
  3. TEMOZOLOMIDE [Suspect]
     Active Substance: TEMOZOLOMIDE
     Indication: Astrocytoma
     Dosage: 150-200 MG/M2/DAY, 5/28 DAY PER CYCLE
  4. TEMOZOLOMIDE [Suspect]
     Active Substance: TEMOZOLOMIDE
     Indication: Astrocytoma
     Dosage: 75 MG/ M2/DAY

REACTIONS (5)
  - Glioblastoma [Recovered/Resolved]
  - Hypersomnia [Unknown]
  - Hemiparesis [Unknown]
  - Therapy partial responder [Unknown]
  - Osteosarcoma [Recovered/Resolved]
